FAERS Safety Report 17241415 (Version 1)
Quarter: 2020Q1

REPORT INFORMATION
  Report Type: Spontaneous
  Country: US (occurrence: US)
  Receive Date: 20200107
  Receipt Date: 20200107
  Transmission Date: 20200409
  Serious: No
  Sender: FDA-Public Use
  Company Number: US-MALLINCKRODT-T201907666

PATIENT
  Sex: Male

DRUGS (1)
  1. BUPRENORPHINE/NALOXONE [Suspect]
     Active Substance: BUPRENORPHINE\NALOXONE
     Indication: PAIN
     Dosage: UNK
     Route: 060

REACTIONS (3)
  - Product solubility abnormal [Unknown]
  - Off label use [Unknown]
  - Wrong technique in product usage process [Unknown]
